FAERS Safety Report 11170752 (Version 1)
Quarter: 2015Q2

REPORT INFORMATION
  Report Type: Spontaneous
  Country: US (occurrence: None)
  Receive Date: 20150515
  Receipt Date: 20150515
  Transmission Date: 20150821
  Serious: Yes (Other)
  Sender: FDA-Public Use
  Company Number: 083178

PATIENT
  Age: 50 Year
  Sex: Female
  Weight: 59.9 kg

DRUGS (4)
  1. PENTASSA (MESALAZINE) [Concomitant]
  2. LOMOTRIZINE (LAMOTRIGINE) [Concomitant]
  3. CIMZIA [Suspect]
     Active Substance: CERTOLIZUMAB PEGOL
     Indication: CROHN^S DISEASE
     Route: 058
  4. CIMZIA [Suspect]
     Active Substance: CERTOLIZUMAB PEGOL
     Indication: CROHN^S DISEASE
     Route: 058
     Dates: start: 20081024

REACTIONS (5)
  - Inappropriate schedule of drug administration [None]
  - Pollakiuria [None]
  - Staphylococcal infection [None]
  - Upper respiratory tract infection [None]
  - Cystitis [None]

NARRATIVE: CASE EVENT DATE: 20081024
